FAERS Safety Report 4382559-6 (Version None)
Quarter: 2004Q2

REPORT INFORMATION
  Report Type: 
  Country: None (occurrence: None)
  Receive Date: 20040617
  Receipt Date: 20040601
  Transmission Date: 20050107
  Serious: Yes (Hospitalization)
  Sender: FDA-Public Use
  Company Number: F01200401270

PATIENT
  Age: 65 Year
  Sex: Male

DRUGS (6)
  1. OXALIPLATIN - SOLUTION - 130 MG/M2 [Suspect]
     Indication: RECTAL CANCER
     Dosage: 130 MG/M2 Q3W, INTRAVENOUS NOS
     Route: 042
     Dates: start: 20031208, end: 20031208
  2. CAPECITABINE - TABLET - 2000 MG/M2 [Suspect]
     Dosage: 1000 MG/M2 TWICE A DAY GIVEN ORALLY FOR 14 DAYS FOLLOWED BY 7 DAYS, REST, ORAL
     Route: 048
     Dates: start: 20031208, end: 20031219
  3. LOSARTAN POTASSIUM [Concomitant]
  4. SIMVASTATIN [Concomitant]
  5. HYDROCHLOROTHIAZIDE [Concomitant]
  6. LOSEC (OMEPRAZOLE) [Concomitant]

REACTIONS (3)
  - CEREBROVASCULAR ACCIDENT [None]
  - HYPOALBUMINAEMIA [None]
  - MYOCARDIAL INFARCTION [None]
